FAERS Safety Report 13674530 (Version 2)
Quarter: 2017Q3

REPORT INFORMATION
  Report Type: Report from Study
  Country: BR (occurrence: BR)
  Receive Date: 20170621
  Receipt Date: 20170809
  Transmission Date: 20171127
  Serious: Yes (Hospitalization, Other)
  Sender: FDA-Public Use
  Company Number: BR-TAKEDA-2017TUS008604

PATIENT
  Age: 34 Year
  Sex: Female

DRUGS (1)
  1. VEDOLIZUMAB [Suspect]
     Active Substance: VEDOLIZUMAB
     Indication: CROHN^S DISEASE
     Dosage: UNK
     Route: 042
     Dates: start: 20170302, end: 20170420

REACTIONS (8)
  - Cholangitis sclerosing [Unknown]
  - Chromaturia [Unknown]
  - Off label use [Unknown]
  - Pruritus [Unknown]
  - Constipation [Unknown]
  - Headache [Unknown]
  - Eye colour change [Unknown]
  - Drug dose omission [Unknown]

NARRATIVE: CASE EVENT DATE: 20170413
